FAERS Safety Report 11444988 (Version 1)
Quarter: 2015Q3

REPORT INFORMATION
  Report Type: Report from Study
  Country: IT (occurrence: IT)
  Receive Date: 20150902
  Receipt Date: 20150902
  Transmission Date: 20151125
  Serious: Yes (Hospitalization)
  Sender: FDA-Public Use
  Company Number: IT-ASTRAZENECA-2015SE74739

PATIENT
  Age: 692 Month
  Sex: Male

DRUGS (7)
  1. EUTIROX [Concomitant]
     Active Substance: LEVOTHYROXINE SODIUM
     Indication: HYPOPARATHYROIDISM
     Dosage: 225 UG
     Route: 048
     Dates: start: 20150624
  2. LOPERAMIDE [Concomitant]
     Active Substance: LOPERAMIDE
     Indication: DIARRHOEA
     Dosage: 4 MG
     Route: 048
     Dates: start: 20150401
  3. MAG 2 [Concomitant]
     Active Substance: MAGNESIUM CHLORIDE
     Indication: HYPOMAGNESAEMIA
     Dosage: 2.25 G
     Route: 048
     Dates: start: 20150624
  4. AZD6474 [Suspect]
     Active Substance: VANDETANIB
     Indication: THYROID CANCER
     Dosage: 300 MG PLACEBO
     Route: 048
     Dates: start: 20140624, end: 20141230
  5. CACIT [Concomitant]
     Active Substance: CALCIUM\VITAMIN D
     Indication: HYPOPARATHYROIDISM
     Dosage: 1000 MG
     Route: 048
     Dates: start: 20150304
  6. CALCIJEX [Concomitant]
     Active Substance: CALCITRIOL
     Indication: HYPOPARATHYROIDISM
     Dosage: 1 UG
     Route: 048
     Dates: start: 20150116
  7. EUTIROX [Concomitant]
     Active Substance: LEVOTHYROXINE SODIUM
     Indication: HYPOPARATHYROIDISM
     Dosage: 200 UG
     Route: 048
     Dates: start: 20150304

REACTIONS (1)
  - Post procedural haemorrhage [Recovered/Resolved]

NARRATIVE: CASE EVENT DATE: 20150729
